FAERS Safety Report 10178076 (Version 2)
Quarter: 2014Q2

REPORT INFORMATION
  Report Type: Report from Study
  Country: CA (occurrence: CA)
  Receive Date: 20140518
  Receipt Date: 20140522
  Transmission Date: 20141212
  Serious: Yes (Other)
  Sender: FDA-Public Use
  Company Number: CA-009507513-1405CAN007277

PATIENT
  Age: 71 Year
  Sex: Male

DRUGS (8)
  1. VICTRELIS [Suspect]
     Dosage: 800 MG, TID
     Route: 048
  2. RIBAVIRIN [Suspect]
     Dosage: 1400 MG , QD
     Route: 048
  3. PEGASYS [Suspect]
     Dosage: 180 MICROGRAM, QW
     Route: 058
  4. FLUTICASONE PROPIONATE (+) SALMETEROL XINAFOATE [Concomitant]
     Route: 055
  5. METFORMIN HYDROCHLORIDE [Concomitant]
     Route: 048
  6. PANTOPRAZOLE [Concomitant]
     Route: 048
  7. RAMIPRIL [Concomitant]
     Route: 048
  8. TIOTROPIUM BROMIDE [Concomitant]
     Route: 055

REACTIONS (2)
  - Chest pain [Unknown]
  - Haemoglobin decreased [Unknown]
